FAERS Safety Report 20017511 (Version 2)
Quarter: 2021Q4

REPORT INFORMATION
  Report Type: Report from Study
  Country: GB (occurrence: GB)
  Receive Date: 20211030
  Receipt Date: 20211129
  Transmission Date: 20220304
  Serious: Yes (Death, Hospitalization, Other)
  Sender: FDA-Public Use
  Company Number: GB-NOVARTISPH-NVSC2021GB244048

PATIENT
  Age: 76 Year
  Sex: Female
  Weight: 65.8 kg

DRUGS (2)
  1. DABRAFENIB [Suspect]
     Active Substance: DABRAFENIB
     Indication: Anaplastic thyroid cancer
     Dosage: 150 MG, BID
     Route: 048
     Dates: start: 20210322, end: 20211002
  2. TRAMETINIB [Suspect]
     Active Substance: TRAMETINIB
     Indication: Anaplastic thyroid cancer
     Dosage: 2 MG, QD
     Route: 048
     Dates: start: 20210322, end: 20211002

REACTIONS (6)
  - Gastrointestinal haemorrhage [Fatal]
  - Pneumonia [Fatal]
  - General physical health deterioration [Unknown]
  - Metastases to pleura [Unknown]
  - Infection [Unknown]
  - Dysphagia [Unknown]

NARRATIVE: CASE EVENT DATE: 20211003
